FAERS Safety Report 15304799 (Version 1)
Quarter: 2018Q3

REPORT INFORMATION
  Report Type: Report from Study
  Country: None (occurrence: US)
  Receive Date: 20180821
  Receipt Date: 20180821
  Transmission Date: 20181010
  Serious: Yes (Hospitalization, Other)
  Sender: FDA-Public Use
  Company Number: US-ABBVIE-18K-163-2452542-00

PATIENT
  Age: 70 Year
  Sex: Male
  Weight: 127.12 kg

DRUGS (6)
  1. XARELTO [Concomitant]
     Active Substance: RIVAROXABAN
     Indication: ATRIAL FIBRILLATION
  2. HUMIRA [Suspect]
     Active Substance: ADALIMUMAB
     Route: 058
     Dates: start: 2018
  3. AMLODIPINE [Concomitant]
     Active Substance: AMLODIPINE BESYLATE
     Indication: BLOOD PRESSURE MEASUREMENT
  4. HUMIRA [Suspect]
     Active Substance: ADALIMUMAB
     Indication: HIDRADENITIS
     Route: 058
     Dates: start: 201602, end: 201805
  5. BENICAR [Concomitant]
     Active Substance: OLMESARTAN MEDOXOMIL
     Indication: BLOOD PRESSURE MEASUREMENT
  6. AMIODARONE [Concomitant]
     Active Substance: AMIODARONE
     Indication: ATRIAL FIBRILLATION

REACTIONS (14)
  - Peripheral swelling [Recovered/Resolved]
  - Basal cell carcinoma [Recovered/Resolved]
  - Diarrhoea [Recovered/Resolved]
  - Poor peripheral circulation [Recovered/Resolved]
  - Arrhythmia [Recovered/Resolved]
  - Anal abscess [Recovered/Resolved]
  - Pneumonia legionella [Recovered/Resolved]
  - Basal cell carcinoma [Recovered/Resolved]
  - Fall [Recovered/Resolved]
  - Peripheral arterial occlusive disease [Recovered/Resolved]
  - Hypertension [Unknown]
  - Hidradenitis [Recovered/Resolved]
  - Mental status changes [Recovered/Resolved]
  - Atrial fibrillation [Not Recovered/Not Resolved]

NARRATIVE: CASE EVENT DATE: 2017
